FAERS Safety Report 23417425 (Version 1)
Quarter: 2024Q1

REPORT INFORMATION
  Report Type: Spontaneous
  Country: US (occurrence: None)
  Receive Date: 20240117
  Receipt Date: 20240117
  Transmission Date: 20240410
  Serious: Yes (Other)
  Sender: FDA-Public Use
  Company Number: None

PATIENT
  Age: 35 Year
  Sex: Female
  Weight: 87.75 kg

DRUGS (5)
  1. ZIPRASIDONE [Suspect]
     Active Substance: ZIPRASIDONE
     Indication: Perinatal depression
  2. CLONIDINE [Suspect]
     Active Substance: CLONIDINE
  3. DEXTROAMPHETAMINE [Suspect]
     Active Substance: DEXTROAMPHETAMINE
  4. EFFEXOR [Suspect]
     Active Substance: VENLAFAXINE HYDROCHLORIDE
  5. ADVAIR HFA [Suspect]
     Active Substance: FLUTICASONE PROPIONATE\SALMETEROL XINAFOATE

REACTIONS (9)
  - Anxiety [None]
  - Panic attack [None]
  - Depression [None]
  - Gastrointestinal disorder [None]
  - Product formulation issue [None]
  - Coeliac disease [None]
  - Product communication issue [None]
  - Intestinal mass [None]
  - Gastrointestinal inflammation [None]

NARRATIVE: CASE EVENT DATE: 20080204
